FAERS Safety Report 17765620 (Version 3)
Quarter: 2020Q2

REPORT INFORMATION
  Report Type: Spontaneous
  Country: US (occurrence: US)
  Receive Date: 20200511
  Receipt Date: 20200629
  Transmission Date: 20200714
  Serious: Yes (Other)
  Sender: FDA-Public Use
  Company Number: US-SA-2020SA117907

PATIENT

DRUGS (1)
  1. LANTUS SOLOSTAR [Suspect]
     Active Substance: INSULIN GLARGINE
     Indication: TYPE 2 DIABETES MELLITUS
     Dosage: 38 IU, PER NIGHT
     Route: 065

REACTIONS (4)
  - Blood glucose increased [Unknown]
  - Product quality issue [Unknown]
  - Diabetes mellitus inadequate control [Unknown]
  - Intentional product use issue [Unknown]
